FAERS Safety Report 17276137 (Version 6)
Quarter: 2021Q4

REPORT INFORMATION
  Report Type: Spontaneous
  Country: JP (occurrence: JP)
  Receive Date: 20200116
  Receipt Date: 20211121
  Transmission Date: 20220303
  Serious: Yes (Hospitalization, Other)
  Sender: FDA-Public Use
  Company Number: JP-MSD-M2020-00260

PATIENT
  Age: 79 Year
  Sex: Male
  Weight: 67 kg

DRUGS (16)
  1. KEYTRUDA [Suspect]
     Active Substance: PEMBROLIZUMAB
     Indication: Lung adenocarcinoma
     Dosage: 200 MILLIGRAM, Q3W
     Route: 041
     Dates: start: 20191224
  2. CARBOPLATIN [Suspect]
     Active Substance: CARBOPLATIN
     Indication: Lung adenocarcinoma
     Dosage: 360 MILLIGRAM, ONCE
     Route: 041
     Dates: start: 20191224
  3. CARBOPLATIN [Suspect]
     Active Substance: CARBOPLATIN
     Dosage: 270 MILLIGRAM
     Route: 041
     Dates: start: 20200121
  4. ALIMTA [Suspect]
     Active Substance: PEMETREXED DISODIUM
     Indication: Lung adenocarcinoma
     Dosage: 880 MILLIGRAM, ONCE
     Route: 041
     Dates: start: 20191224
  5. ALIMTA [Suspect]
     Active Substance: PEMETREXED DISODIUM
     Dosage: 680 MILLIGRAM, ONCE
     Route: 041
     Dates: start: 20200121
  6. HYDROCHLOROTHIAZIDE\LOSARTAN POTASSIUM [Concomitant]
     Active Substance: HYDROCHLOROTHIAZIDE\LOSARTAN POTASSIUM
     Dosage: 1 DOSAGE FORM X 1
     Route: 048
  7. FOLIC ACID [Concomitant]
     Active Substance: FOLIC ACID
     Dosage: 0.1 DOSAGE FORM X 1
     Route: 048
  8. CRESTOR [Concomitant]
     Active Substance: ROSUVASTATIN CALCIUM
     Dosage: 5 MILLIGRAM X 1
     Route: 048
  9. VONOPRAZAN FUMARATE [Concomitant]
     Active Substance: VONOPRAZAN FUMARATE
     Dosage: 10 MILLIGRAM X 1
     Route: 048
  10. NEUROVITAN [CYANOCOBALAMIN;OCTOTIAMINE;PYRIDOXINE HYDROCHLORIDE;RIBOFL [Concomitant]
     Dosage: 1 DOSAGE FORM X 3
     Route: 048
  11. DELUX C [Concomitant]
     Dosage: 1 P X 3
     Route: 065
  12. LIDOCAINE\TRIBENOSIDE [Concomitant]
     Active Substance: LIDOCAINE\TRIBENOSIDE
     Dosage: UNK, PRN
     Route: 051
  13. SOLANAX [Concomitant]
     Active Substance: ALPRAZOLAM
     Dosage: UNK, PRN
     Route: 048
  14. KETOPROFEN [Concomitant]
     Active Substance: KETOPROFEN
     Dosage: UNK
     Route: 065
  15. DEXAMETHASONE SODIUM PHOSPHATE [Concomitant]
     Active Substance: DEXAMETHASONE SODIUM PHOSPHATE
     Dosage: 4.95 MILLIGRAM, UNK
     Route: 051
     Dates: start: 20191224, end: 20191224
  16. DECADRON [Concomitant]
     Active Substance: DEXAMETHASONE
     Dosage: 4 MILLIGRAM, UNK
     Route: 048
     Dates: start: 20191225, end: 20191227

REACTIONS (4)
  - Cytopenia [Recovered/Resolved]
  - Inappropriate antidiuretic hormone secretion [Recovering/Resolving]
  - Myelosuppression [Recovered/Resolved]
  - Hyponatraemia [Recovering/Resolving]

NARRATIVE: CASE EVENT DATE: 20191230
